FAERS Safety Report 5844286-5 (Version None)
Quarter: 2008Q3

REPORT INFORMATION
  Report Type: 
  Country: None (occurrence: None)
  Receive Date: 20080813
  Receipt Date: 20080730
  Transmission Date: 20090109
  Serious: Yes (Hospitalization, Other)
  Sender: FDA-Public Use
  Company Number: JP-ABBOTT-08P-087-0470006-00

PATIENT
  Age: 74 Year
  Sex: Male

DRUGS (7)
  1. LEUPROLIDE ACETATE [Suspect]
     Indication: PROSTATE CANCER STAGE IV
     Route: 058
     Dates: start: 20060815
  2. BICALUTAMIDE [Concomitant]
     Indication: PROSTATE CANCER STAGE IV
     Route: 048
     Dates: end: 20061007
  3. MAGNESIUM OXIDE [Concomitant]
     Indication: CONSTIPATION
     Route: 048
  4. PROCHLORPERAZINE [Concomitant]
     Indication: NAUSEA
     Route: 048
  5. OXYCODONE HCL [Concomitant]
     Indication: CANCER PAIN
     Route: 048
  6. PURSENNID [Concomitant]
     Indication: CONSTIPATION
     Route: 048
     Dates: end: 20061113
  7. FENTANYL [Concomitant]
     Indication: CANCER PAIN
     Route: 062
     Dates: start: 20061113

REACTIONS (5)
  - ASTHENIA [None]
  - GASTRIC ULCER [None]
  - NEOPLASM MALIGNANT [None]
  - PNEUMONIA ASPIRATION [None]
  - STRESS [None]
